FAERS Safety Report 5497143-0 (Version None)
Quarter: 2007Q4

REPORT INFORMATION
  Report Type: 
  Country: None (occurrence: None)
  Receive Date: 20071025
  Receipt Date: 20071010
  Transmission Date: 20080405
  Serious: Yes (Hospitalization)
  Sender: FDA-Public Use
  Company Number: US-ROCHE-525535

PATIENT
  Age: 46 Year
  Sex: Female

DRUGS (8)
  1. CELLCEPT [Suspect]
     Indication: RENAL TRANSPLANT
     Route: 048
     Dates: start: 20070426, end: 20070615
  2. NEORAL [Suspect]
     Indication: RENAL TRANSPLANT
     Route: 048
     Dates: start: 20070430
  3. MEDROL [Concomitant]
     Dates: start: 20070514
  4. PROTONIX [Concomitant]
     Dates: start: 20070508
  5. GANCICLOVIR [Concomitant]
     Dates: start: 20070505
  6. ACETYLSALICYLIC ACID SRT [Concomitant]
     Dates: start: 20070507
  7. BACTRIM [Concomitant]
     Dates: start: 20070427
  8. PHENERGAN HCL [Concomitant]
     Dates: start: 20070507

REACTIONS (5)
  - ABDOMINAL PAIN UPPER [None]
  - CLOSTRIDIAL INFECTION [None]
  - NAUSEA [None]
  - SMALL INTESTINAL OBSTRUCTION [None]
  - VOMITING [None]
